FAERS Safety Report 14035175 (Version 4)
Quarter: 2020Q3

REPORT INFORMATION
  Report Type: Report from Study
  Country: CZ (occurrence: CZ)
  Receive Date: 20171003
  Receipt Date: 20171222
  Transmission Date: 20201105
  Serious: Yes (Hospitalization)
  Sender: FDA-Public Use
  Company Number: CZ-JNJFOC-20170931368

PATIENT
  Age: 70 Year
  Sex: Male

DRUGS (11)
  1. ASMANEX [Concomitant]
     Active Substance: MOMETASONE FUROATE
  2. IBRUTINIB [Suspect]
     Active Substance: IBRUTINIB
     Indication: CHRONIC LYMPHOCYTIC LEUKAEMIA
     Route: 048
     Dates: start: 20150803, end: 20170830
  3. BETALOC [Concomitant]
     Active Substance: METOPROLOL TARTRATE
  4. IBRUTINIB [Suspect]
     Active Substance: IBRUTINIB
     Route: 048
  5. MILURIT [Concomitant]
     Active Substance: ALLOPURINOL
  6. HICOMIN [Concomitant]
  7. OMEPRAZOLE. [Concomitant]
     Active Substance: OMEPRAZOLE
  8. TORVACARD [Concomitant]
     Active Substance: ATORVASTATIN CALCIUM
  9. AMICLOTON [Concomitant]
  10. FRAXIPARINE [Concomitant]
     Active Substance: NADROPARIN CALCIUM
     Dates: end: 20170803
  11. OBINUTUZUMAB. [Suspect]
     Active Substance: OBINUTUZUMAB
     Indication: CHRONIC LYMPHOCYTIC LEUKAEMIA
     Route: 042
     Dates: start: 20150803

REACTIONS (1)
  - Haemoptysis [Recovered/Resolved]

NARRATIVE: CASE EVENT DATE: 20170828
